FAERS Safety Report 17747298 (Version 1)
Quarter: 2020Q2

REPORT INFORMATION
  Report Type: Spontaneous
  Country: US (occurrence: GB)
  Receive Date: 20200505
  Receipt Date: 20200505
  Transmission Date: 20200714
  Serious: Yes (Life-Threatening, Other)
  Sender: FDA-Public Use
  Company Number: US-BIOMARINAP-GB-2020-130017

PATIENT
  Age: 24 Year
  Sex: Male

DRUGS (4)
  1. PALYNZIQ [Suspect]
     Active Substance: PEGVALIASE-PQPZ
     Indication: PHENYLKETONURIA
     Dosage: 20 MILLIGRAM, QD
     Route: 058
  2. ZYRTEC [Concomitant]
     Active Substance: CETIRIZINE HYDROCHLORIDE
     Indication: PREMEDICATION
     Dosage: 10 MILLIGRAM, QD
     Route: 048
     Dates: start: 20190403
  3. PALYNZIQ [Suspect]
     Active Substance: PEGVALIASE-PQPZ
     Dosage: UNK
     Route: 058
     Dates: start: 20190321
  4. EPIPEN [Concomitant]
     Active Substance: EPINEPHRINE
     Indication: PRODUCT USED FOR UNKNOWN INDICATION
     Dosage: 0.3 MILLIGRAM, PRN
     Route: 030
     Dates: start: 201903

REACTIONS (14)
  - Anaphylactic shock [Unknown]
  - Rash [Unknown]
  - Altered state of consciousness [Unknown]
  - Respiratory distress [Unknown]
  - Vomiting [Unknown]
  - Syncope [Unknown]
  - Erythema [Unknown]
  - Dyspnoea [Unknown]
  - Lethargy [Unknown]
  - Somnolence [Unknown]
  - Hypoaesthesia oral [Unknown]
  - Pruritus [Unknown]
  - Memory impairment [Unknown]
  - Confusional state [Unknown]

NARRATIVE: CASE EVENT DATE: 20200114
